FAERS Safety Report 6888511-0 (Version None)
Quarter: 2010Q3

REPORT INFORMATION
  Report Type: 
  Country: None (occurrence: None)
  Receive Date: 20100730
  Receipt Date: 20100719
  Transmission Date: 20110219
  Serious: Yes (Hospitalization, Other)
  Sender: FDA-Public Use
  Company Number: PHHY2010US26509

PATIENT
  Sex: Male
  Weight: 90.9 kg

DRUGS (17)
  1. EXJADE [Suspect]
     Indication: ANAEMIA OF CHRONIC DISEASE
     Dosage: 1750 MG DAILY
     Route: 048
     Dates: start: 20100409
  2. EXJADE [Suspect]
     Indication: IRON OVERLOAD
     Dosage: 1750 MG, UNK
     Route: 048
     Dates: start: 20100412
  3. COREG [Concomitant]
     Dosage: 25 MG, BID
  4. BUMEX [Concomitant]
  5. HYDRALAZINE HCL [Concomitant]
     Dosage: 50 MG, BID
  6. METOLAZONE [Concomitant]
  7. ELAVIL [Concomitant]
     Dosage: 25 MG, QID
  8. AMARYL [Concomitant]
     Dosage: 4 MG, BID
  9. FENTANYL-100 [Concomitant]
     Dosage: 150 MCG, Q48H
  10. RESTORIL [Concomitant]
     Dosage: 30 MG, QHS
  11. PLAVIX [Concomitant]
     Dosage: 75 MG, QID
  12. PHENERGAN [Concomitant]
     Dosage: 25 MG PRN
  13. SULAR [Concomitant]
     Dosage: 5 MG, QAM
  14. ASPIRIN [Concomitant]
     Dosage: 81 MG, QAM
  15. DILAUDID [Concomitant]
     Dosage: 4 MG Q6H PRN
  16. LORAZEPAM [Concomitant]
     Dosage: 1 MG, Q8H PRN
  17. PLAVIX [Concomitant]

REACTIONS (9)
  - BONE PAIN [None]
  - DIARRHOEA [None]
  - DIZZINESS [None]
  - FATIGUE [None]
  - FEELING ABNORMAL [None]
  - HAEMOGLOBIN DECREASED [None]
  - MALIGNANT NEOPLASM PROGRESSION [None]
  - PNEUMONIA [None]
  - SPLEEN DISORDER [None]
